FAERS Safety Report 9668320 (Version 2)
Quarter: 2013Q4

REPORT INFORMATION
  Report Type: Spontaneous
  Country: US (occurrence: US)
  Receive Date: 20131104
  Receipt Date: 20131104
  Transmission Date: 20140711
  Serious: No
  Sender: FDA-Public Use
  Company Number: US-BAXTER-2013BAX003960

PATIENT
  Sex: Female
  Weight: 12 kg

DRUGS (3)
  1. VANCOMYCIN INJECTION, USP [Suspect]
     Indication: PRODUCT USED FOR UNKNOWN INDICATION
     Dosage: 160MG/32ML
     Route: 042
     Dates: start: 20121214, end: 20121219
  2. CEFEPIME [Concomitant]
     Indication: INFECTION
     Route: 042
     Dates: start: 20121214, end: 20121214
  3. POTASSIUM CHLORIDE IN D5.45 [Concomitant]
     Indication: PRODUCT USED FOR UNKNOWN INDICATION
     Route: 042
     Dates: start: 20121214, end: 20121218

REACTIONS (1)
  - Phlebitis [Recovered/Resolved]
